FAERS Safety Report 7954849-9 (Version None)
Quarter: 2011Q4

REPORT INFORMATION
  Report Type: 
  Country: None (occurrence: None)
  Receive Date: 20111202
  Receipt Date: 20111130
  Transmission Date: 20120403
  Serious: Yes (Hospitalization)
  Sender: FDA-Public Use
  Company Number: US-ACTELION-A-US2011-52979

PATIENT

DRUGS (2)
  1. COUMADIN [Concomitant]
  2. TRACLEER [Suspect]
     Indication: PULMONARY ARTERIAL HYPERTENSION
     Dosage: UNK
     Route: 048
     Dates: start: 20100107

REACTIONS (7)
  - CHILLS [None]
  - ANAEMIA [None]
  - PYREXIA [None]
  - DYSPNOEA [None]
  - BLOOD POTASSIUM DECREASED [None]
  - CHEST PAIN [None]
  - PAIN [None]
